FAERS Safety Report 24660191 (Version 2)
Quarter: 2024Q4

REPORT INFORMATION
  Report Type: Report from Study
  Country: US (occurrence: US)
  Receive Date: 20241125
  Receipt Date: 20241202
  Transmission Date: 20250115
  Serious: Yes (Hospitalization)
  Sender: ABBVIE
  Company Number: US-ABBVIE-6009328

PATIENT
  Age: 63 Year
  Sex: Female

DRUGS (3)
  1. HUMIRA [Suspect]
     Active Substance: ADALIMUMAB
     Indication: Rheumatoid arthritis
     Route: 058
     Dates: start: 20241025
  2. HUMIRA [Suspect]
     Active Substance: ADALIMUMAB
     Dosage: CITRATE FREE
     Route: 058
     Dates: start: 2019
  3. ENBREL [Suspect]
     Active Substance: ETANERCEPT
     Indication: Product used for unknown indication
     Route: 065
     Dates: end: 202403

REACTIONS (18)
  - Sinus tachycardia [Unknown]
  - Fatigue [Unknown]
  - Ventricular extrasystoles [Unknown]
  - Heart rate increased [Unknown]
  - Hand deformity [Unknown]
  - Rash macular [Unknown]
  - Movement disorder [Unknown]
  - Chest discomfort [Unknown]
  - Skin discolouration [Unknown]
  - Feeling hot [Not Recovered/Not Resolved]
  - Pain in extremity [Unknown]
  - Pain [Recovering/Resolving]
  - Diabetes mellitus [Not Recovered/Not Resolved]
  - Chronic obstructive pulmonary disease [Not Recovered/Not Resolved]
  - Joint noise [Recovering/Resolving]
  - Loss of personal independence in daily activities [Not Recovered/Not Resolved]
  - Injection site pain [Unknown]
  - Stress [Unknown]

NARRATIVE: CASE EVENT DATE: 20230101
